FAERS Safety Report 13025036 (Version 4)
Quarter: 2017Q1

REPORT INFORMATION
  Report Type: Report from Study
  Country: JP (occurrence: JP)
  Receive Date: 20161213
  Receipt Date: 20170321
  Transmission Date: 20170428
  Serious: Yes (Hospitalization, Other)
  Sender: FDA-Public Use
  Company Number: JP-CELGENEUS-JPN-2014105385

PATIENT
  Age: 79 Year
  Sex: Female
  Weight: 53 kg

DRUGS (44)
  1. ISODINE [Concomitant]
     Active Substance: POVIDONE-IODINE
     Indication: PRODUCT USED FOR UNKNOWN INDICATION
     Route: 065
     Dates: start: 20111206
  2. MOHRUS TAPE [Concomitant]
     Active Substance: KETOPROFEN
     Indication: PRODUCT USED FOR UNKNOWN INDICATION
     Route: 065
     Dates: start: 20120507
  3. MOHRUS TAPE [Concomitant]
     Active Substance: KETOPROFEN
     Route: 065
     Dates: start: 20141205
  4. VIDAZA [Suspect]
     Active Substance: AZACITIDINE
     Dosage: 50.25MG/M2
     Route: 041
     Dates: start: 20121213, end: 20121217
  5. ASTOMIN [Concomitant]
     Active Substance: DIMEMORFAN
     Indication: PRODUCT USED FOR UNKNOWN INDICATION
     Route: 065
     Dates: start: 20111221, end: 20130104
  6. DEXALTIN [Concomitant]
     Active Substance: DEXAMETHASONE
     Indication: PRODUCT USED FOR UNKNOWN INDICATION
     Route: 065
     Dates: start: 20120110
  7. VIDAZA [Suspect]
     Active Substance: AZACITIDINE
     Dosage: 50.25MG/M2
     Route: 041
     Dates: start: 20121109, end: 20121113
  8. VIDAZA [Suspect]
     Active Substance: AZACITIDINE
     Dosage: 50.25MG/M2
     Route: 041
     Dates: start: 20130323, end: 20130327
  9. GENINAX [Concomitant]
     Active Substance: GARENOXACIN MESYLATE
     Indication: PRODUCT USED FOR UNKNOWN INDICATION
     Route: 065
     Dates: start: 20111221, end: 20111226
  10. AZULENE SULFONATE SODIUM [Concomitant]
     Active Substance: SODIUM GUALENATE
     Indication: PRODUCT USED FOR UNKNOWN INDICATION
     Route: 048
     Dates: start: 20111028
  11. VIDAZA [Suspect]
     Active Substance: AZACITIDINE
     Dosage: 50MG/M2
     Route: 041
     Dates: start: 20120107, end: 20120111
  12. VIDAZA [Suspect]
     Active Substance: AZACITIDINE
     Dosage: 50MG/M2
     Route: 041
     Dates: start: 20120307, end: 20120311
  13. VIDAZA [Suspect]
     Active Substance: AZACITIDINE
     Dosage: 50.25MG/M2
     Route: 041
     Dates: start: 20120906, end: 20120910
  14. VIDAZA [Suspect]
     Active Substance: AZACITIDINE
     Dosage: 75 MILLIGRAM/SQ. METER
     Route: 041
     Dates: start: 20141205, end: 20141211
  15. VIDAZA [Suspect]
     Active Substance: AZACITIDINE
     Dosage: 75 MILLIGRAM/SQ. METER
     Route: 041
     Dates: start: 20150305, end: 20150309
  16. PL [Concomitant]
     Active Substance: ACETAMINOPHEN\CAFFEINE\PROMETHAZINE\SALICYLAMIDE
     Indication: PRODUCT USED FOR UNKNOWN INDICATION
     Route: 065
     Dates: start: 20111221, end: 20120104
  17. PRIMOBOLAN-DEPOT [Concomitant]
     Active Substance: METHENOLONE ENANTHATE
     Indication: PRODUCT USED FOR UNKNOWN INDICATION
     Route: 065
     Dates: start: 20120404, end: 20140727
  18. ONDANSETRON [Concomitant]
     Active Substance: ONDANSETRON
     Route: 065
     Dates: start: 20120906
  19. VIDAZA [Suspect]
     Active Substance: AZACITIDINE
     Indication: MYELODYSPLASTIC SYNDROME
     Dosage: 50MG/M2
     Route: 041
     Dates: start: 20111027, end: 20111102
  20. VIDAZA [Suspect]
     Active Substance: AZACITIDINE
     Dosage: 50.25MG/M2
     Route: 041
     Dates: start: 20120805, end: 20120809
  21. VIDAZA [Suspect]
     Active Substance: AZACITIDINE
     Dosage: 37.5MG/M2
     Route: 041
     Dates: start: 20130718, end: 20130722
  22. MYSLEE [Concomitant]
     Active Substance: ZOLPIDEM TARTRATE
     Indication: PRODUCT USED FOR UNKNOWN INDICATION
     Route: 065
     Dates: start: 20120404, end: 20120414
  23. NEXIUM [Concomitant]
     Active Substance: ESOMEPRAZOLE MAGNESIUM
     Indication: PRODUCT USED FOR UNKNOWN INDICATION
     Route: 065
     Dates: start: 20140905
  24. VIDAZA [Suspect]
     Active Substance: AZACITIDINE
     Dosage: 37.5MG/M2
     Route: 041
     Dates: start: 20120517, end: 20120521
  25. VIDAZA [Suspect]
     Active Substance: AZACITIDINE
     Dosage: 50.25MG/M2
     Route: 041
     Dates: start: 20121012, end: 20121016
  26. VIDAZA [Suspect]
     Active Substance: AZACITIDINE
     Dosage: 50.25MG/M2
     Route: 041
     Dates: start: 20130426, end: 20130430
  27. VIDAZA [Suspect]
     Active Substance: AZACITIDINE
     Dosage: 75 MILLIGRAM/SQ. METER
     Route: 041
     Dates: start: 20150108, end: 20150112
  28. VIDAZA [Suspect]
     Active Substance: AZACITIDINE
     Dosage: 75 MILLIGRAM/SQ. METER
     Route: 041
     Dates: start: 20150205, end: 20150209
  29. MAGMITT [Concomitant]
     Active Substance: MAGNESIUM OXIDE
     Indication: PRODUCT USED FOR UNKNOWN INDICATION
     Dosage: 330
     Route: 048
     Dates: start: 20111029, end: 20130619
  30. MOHRUS TAPE [Concomitant]
     Active Substance: KETOPROFEN
     Route: 065
     Dates: start: 20140912
  31. LEVOCETIRIZINE HYDROCHLORIDE [Concomitant]
     Active Substance: LEVOCETIRIZINE HYDROCHLORIDE
     Indication: PRODUCT USED FOR UNKNOWN INDICATION
     Route: 065
     Dates: start: 20130614
  32. CLOSTRIDIUM BUTYRICUM [Concomitant]
     Active Substance: CLOSTRIDIUM BUTYRICUM SPORES STRAIN M-55
     Indication: PRODUCT USED FOR UNKNOWN INDICATION
     Route: 065
     Dates: start: 20141216
  33. VIDAZA [Suspect]
     Active Substance: AZACITIDINE
     Dosage: 50MG/M2
     Route: 041
     Dates: start: 20111201, end: 20111205
  34. REVLIMID [Suspect]
     Active Substance: LENALIDOMIDE
     Indication: MYELODYSPLASTIC SYNDROME
     Route: 048
     Dates: start: 20130422
  35. SEROTONE [Concomitant]
     Active Substance: AZASETRON HYDROCHLORIDE
     Indication: PRODUCT USED FOR UNKNOWN INDICATION
     Route: 065
     Dates: start: 20111027, end: 20120709
  36. ONDANSETRON [Concomitant]
     Active Substance: ONDANSETRON
     Indication: PRODUCT USED FOR UNKNOWN INDICATION
     Route: 065
     Dates: start: 20120805, end: 20120809
  37. VIDAZA [Suspect]
     Active Substance: AZACITIDINE
     Dosage: 50MG/M2
     Route: 041
     Dates: start: 20120206, end: 20120210
  38. VIDAZA [Suspect]
     Active Substance: AZACITIDINE
     Dosage: 37.5MG/M2
     Route: 041
     Dates: start: 20120705, end: 20120709
  39. VIDAZA [Suspect]
     Active Substance: AZACITIDINE
     Dosage: 50.25MG/M2
     Route: 041
     Dates: start: 20130216, end: 20130220
  40. VIDAZA [Suspect]
     Active Substance: AZACITIDINE
     Dosage: 50.25MG/M2
     Route: 041
     Dates: start: 20130614, end: 20130618
  41. SENNOSIDE [Concomitant]
     Active Substance: SENNOSIDES
     Indication: PRODUCT USED FOR UNKNOWN INDICATION
     Route: 065
     Dates: start: 20111105, end: 20120119
  42. DEXALTIN [Concomitant]
     Active Substance: DEXAMETHASONE
     Route: 065
  43. VIDAZA [Suspect]
     Active Substance: AZACITIDINE
     Dosage: 50.25MG/M2
     Route: 041
     Dates: start: 20130119, end: 20130123
  44. PROTECADIN [Concomitant]
     Active Substance: LAFUTIDINE
     Indication: PRODUCT USED FOR UNKNOWN INDICATION
     Route: 065
     Dates: start: 20111027, end: 20140904

REACTIONS (12)
  - Liver disorder [Not Recovered/Not Resolved]
  - Platelet count decreased [Recovering/Resolving]
  - Stomatitis [Unknown]
  - White blood cell count increased [Recovering/Resolving]
  - Nausea [Recovering/Resolving]
  - Bone marrow failure [Recovering/Resolving]
  - Constipation [Recovered/Resolved]
  - Cough [Recovering/Resolving]
  - Stomatitis [Recovering/Resolving]
  - Oropharyngeal pain [Recovering/Resolving]
  - Stomatitis [Unknown]
  - Internal haemorrhage [Recovered/Resolved]

NARRATIVE: CASE EVENT DATE: 20111028
